FAERS Safety Report 12458297 (Version 7)
Quarter: 2017Q2

REPORT INFORMATION
  Report Type: Report from Study
  Country: CA (occurrence: CA)
  Receive Date: 20160613
  Receipt Date: 20170503
  Transmission Date: 20170830
  Serious: Yes (Hospitalization)
  Sender: FDA-Public Use
  Company Number: CA-ROCHE-1770874

PATIENT
  Age: 51 Year
  Sex: Male
  Weight: 86.9 kg

DRUGS (28)
  1. FENTANYL. [Concomitant]
     Active Substance: FENTANYL
     Indication: FLANK PAIN
     Route: 065
     Dates: start: 20160425
  2. VENLAFAXINE [Concomitant]
     Active Substance: VENLAFAXINE HYDROCHLORIDE
     Route: 065
     Dates: start: 20160425, end: 20160711
  3. SENNOSIDES. [Concomitant]
     Active Substance: SENNOSIDES
     Indication: CONSTIPATION PROPHYLAXIS
     Route: 048
     Dates: start: 20160410
  4. TAMSULOSIN [Concomitant]
     Active Substance: TAMSULOSIN
     Indication: DYSURIA
  5. GRAVOL [Concomitant]
     Active Substance: DIMENHYDRINATE
     Indication: NAUSEA
     Route: 065
     Dates: start: 20160506
  6. LYRICA [Concomitant]
     Active Substance: PREGABALIN
     Indication: FLANK PAIN
     Route: 048
     Dates: start: 20160417
  7. OXAZEPAM. [Concomitant]
     Active Substance: OXAZEPAM
     Indication: INSOMNIA
     Route: 048
     Dates: start: 2010, end: 20160711
  8. ALLOPURINOL. [Concomitant]
     Active Substance: ALLOPURINOL
     Indication: PROPHYLAXIS
     Route: 048
     Dates: start: 20160506, end: 20160527
  9. DEXAMETHASONE. [Concomitant]
     Active Substance: DEXAMETHASONE
     Indication: PROPHYLAXIS OF NAUSEA AND VOMITING
     Route: 048
     Dates: start: 20160505
  10. GRAVOL [Concomitant]
     Active Substance: DIMENHYDRINATE
     Route: 065
     Dates: start: 20160510
  11. DEXAMETHASONE. [Concomitant]
     Active Substance: DEXAMETHASONE
     Route: 048
     Dates: start: 20160505, end: 20160823
  12. DALTEPARIN [Concomitant]
     Active Substance: DALTEPARIN
     Indication: THROMBOSIS PROPHYLAXIS
     Route: 058
     Dates: start: 20160410, end: 20160510
  13. NEUPOGEN [Concomitant]
     Active Substance: FILGRASTIM
     Route: 065
     Dates: start: 20160530, end: 20160603
  14. RITUXIMAB [Suspect]
     Active Substance: RITUXIMAB
     Indication: B-CELL LYMPHOMA
     Dosage: THE MOST RECENT DOSE OF RITUXIMAB PRIOR TO THE ONSET OF THE EVENT WAS 787 MG ON 26/MAY/2016 AT 1050.
     Route: 042
     Dates: start: 20160505
  15. CYCLOPHOSPHAMIDE. [Suspect]
     Active Substance: CYCLOPHOSPHAMIDE
     Indication: B-CELL LYMPHOMA
     Dosage: THE MOST RECENT DOSE OF CYCLOPHOSPHAMIDE WAS 1575 MG ON 26/MAY/2016 AT 15:15.
     Route: 042
     Dates: start: 20160506
  16. TAMSULOSIN [Concomitant]
     Active Substance: TAMSULOSIN
     Indication: FLANK PAIN
     Route: 048
     Dates: start: 20160410, end: 201605
  17. APREPITANT. [Concomitant]
     Active Substance: APREPITANT
     Indication: PROPHYLAXIS OF NAUSEA AND VOMITING
     Route: 065
     Dates: start: 20160526, end: 20160528
  18. VENETOCLAX [Suspect]
     Active Substance: VENETOCLAX
     Indication: B-CELL LYMPHOMA
     Dosage: MOST RECENT DOSE: 03/JUN/2016
     Route: 048
     Dates: start: 20160509
  19. VINCRISTINE [Suspect]
     Active Substance: VINCRISTINE
     Indication: B-CELL LYMPHOMA
     Dosage: THE MOST RECENT DOSE OF VINCRISTINE WAS 2 MG ON 26/MAY/2016 AT 15:00
     Route: 042
     Dates: start: 20160506
  20. DILAUDID [Concomitant]
     Active Substance: HYDROMORPHONE HYDROCHLORIDE
     Indication: FLANK PAIN
     Route: 048
     Dates: start: 20160425, end: 20160602
  21. TYLENOL EXTRA STRENGTH [Concomitant]
     Active Substance: ACETAMINOPHEN
     Indication: MIGRAINE
     Route: 048
     Dates: start: 2013
  22. NEUPOGEN [Concomitant]
     Active Substance: FILGRASTIM
     Indication: PROPHYLAXIS
     Route: 065
     Dates: start: 20160510, end: 20160514
  23. DOXORUBICIN [Suspect]
     Active Substance: DOXORUBICIN
     Indication: B-CELL LYMPHOMA
     Dosage: THE MOST RECENT DOSE OF DOXORUBICIN WAS 105 MG ON 26/MAY/2016 AT 14:45
     Route: 042
     Dates: start: 20160506
  24. VENLAFAXINE [Concomitant]
     Active Substance: VENLAFAXINE HYDROCHLORIDE
     Indication: DEPRESSION
     Route: 048
     Dates: start: 20160421
  25. PREDNISONE. [Suspect]
     Active Substance: PREDNISONE
     Indication: B-CELL LYMPHOMA
     Dosage: MOST RECENT DOSE: 30/MAY/2016
     Route: 048
     Dates: start: 20160505
  26. VENLAFAXINE [Concomitant]
     Active Substance: VENLAFAXINE HYDROCHLORIDE
     Route: 048
     Dates: start: 20160421, end: 20160424
  27. METOCLOPRAMIDE. [Concomitant]
     Active Substance: METOCLOPRAMIDE
     Indication: NAUSEA
     Route: 048
     Dates: start: 20160508, end: 20160508
  28. ONDANSETRON [Concomitant]
     Active Substance: ONDANSETRON
     Indication: PROPHYLAXIS OF NAUSEA AND VOMITING
     Route: 048
     Dates: start: 20160505, end: 20160823

REACTIONS (2)
  - Pneumonia [Recovered/Resolved]
  - Pancreatitis [Recovered/Resolved]

NARRATIVE: CASE EVENT DATE: 20160604
